FAERS Safety Report 20015882 (Version 1)
Quarter: 2021Q4

REPORT INFORMATION
  Report Type: Spontaneous
  Country: US (occurrence: None)
  Receive Date: 20211102
  Receipt Date: 20211102
  Transmission Date: 20220303
  Serious: No
  Sender: FDA-Public Use
  Company Number: None

PATIENT
  Age: 20 Year
  Sex: Female
  Weight: 49.9 kg

DRUGS (1)
  1. NEXPLANON [Suspect]
     Active Substance: ETONOGESTREL

REACTIONS (8)
  - Acne cystic [None]
  - Ovarian cyst [None]
  - Urinary tract infection [None]
  - Fungal infection [None]
  - Abscess [None]
  - Uterine disorder [None]
  - Vaginal disorder [None]
  - Product complaint [None]
